FAERS Safety Report 5837543-X (Version None)
Quarter: 2008Q3

REPORT INFORMATION
  Report Type: 
  Country: None (occurrence: None)
  Receive Date: 20080807
  Receipt Date: 20080728
  Transmission Date: 20090109
  Serious: Yes (Death, Life-Threatening, Hospitalization)
  Sender: FDA-Public Use
  Company Number: MX-ELI_LILLY_AND_COMPANY-MX200806004257

PATIENT
  Age: 78 Year
  Sex: Male
  Weight: 80 kg

DRUGS (7)
  1. CYMBALTA [Suspect]
     Indication: DEPRESSION
     Dosage: 30 MG, UNK
     Route: 065
     Dates: start: 20080617, end: 20080617
  2. ZYPREXA [Suspect]
     Indication: SLEEP DISORDER
     Dosage: 10 MG, UNKNOWN
     Route: 060
     Dates: start: 20080617, end: 20080617
  3. CEPHALEXIN [Concomitant]
     Dosage: UNK, UNKNOWN
     Route: 065
  4. MICARDIS [Concomitant]
     Dosage: UNK, UNKNOWN
     Route: 065
  5. DIFLUCAN [Concomitant]
     Indication: ANTIBIOTIC THERAPY
     Dosage: UNK, UNKNOWN
     Route: 065
  6. ENOXAPARIN SODIUM [Concomitant]
     Indication: ANTICOAGULANT THERAPY
     Dosage: UNK, UNKNOWN
     Route: 065
  7. NORVASC [Concomitant]
     Dosage: UNK, UNKNOWN
     Route: 065

REACTIONS (2)
  - INFARCTION [None]
  - RESPIRATORY ARREST [None]
